FAERS Safety Report 7647733-1 (Version None)
Quarter: 2011Q3

REPORT INFORMATION
  Report Type: 
  Country: None (occurrence: None)
  Receive Date: 20110801
  Receipt Date: 20110801
  Transmission Date: 20111222
  Serious: No
  Sender: FDA-Public Use
  Company Number: None

PATIENT
  Age: 48 Year
  Sex: Female
  Weight: 72.574 kg

DRUGS (1)
  1. LEVAQUIN [Suspect]
     Indication: SKIN INFECTION
     Dosage: 750 MG
     Route: 048
     Dates: start: 20110705, end: 20110707

REACTIONS (4)
  - ARTHRALGIA [None]
  - TENDON PAIN [None]
  - GAIT DISTURBANCE [None]
  - ABDOMINAL DISCOMFORT [None]
